FAERS Safety Report 14779325 (Version 1)
Quarter: 2018Q2

REPORT INFORMATION
  Report Type: Spontaneous
  Country: US (occurrence: US)
  Receive Date: 20180419
  Receipt Date: 20180419
  Transmission Date: 20180711
  Serious: Yes (Other)
  Sender: FDA-Public Use
  Company Number: US-BRACCO-2018US02039

PATIENT
  Age: 50 Year
  Sex: Male

DRUGS (1)
  1. LUMASON [Suspect]
     Active Substance: SULFUR HEXAFLUORIDE
     Indication: DIAGNOSTIC PROCEDURE
     Dosage: UNK
     Dates: start: 20180410, end: 20180410

REACTIONS (10)
  - Back pain [Recovering/Resolving]
  - Nausea [Recovering/Resolving]
  - Pulmonary oedema [Recovering/Resolving]
  - Tachycardia [Recovering/Resolving]
  - Blood pressure decreased [Recovering/Resolving]
  - Wheezing [Recovering/Resolving]
  - Flushing [Recovering/Resolving]
  - Oxygen saturation decreased [Recovering/Resolving]
  - Vomiting [Recovering/Resolving]
  - Syncope [Recovered/Resolved]

NARRATIVE: CASE EVENT DATE: 20180410
